FAERS Safety Report 9477315 (Version 2)
Quarter: 2013Q3

REPORT INFORMATION
  Report Type: Report from Study
  Country: US (occurrence: US)
  Receive Date: 20130826
  Receipt Date: 20130903
  Transmission Date: 20140515
  Serious: Yes (Hospitalization)
  Sender: FDA-Public Use
  Company Number: US-ROCHE-1266272

PATIENT
  Sex: Female
  Weight: 87.17 kg

DRUGS (14)
  1. XOLAIR [Suspect]
     Indication: ASTHMA
     Route: 058
  2. ADVAIR [Concomitant]
  3. ALBUTEROL [Concomitant]
  4. FLONASE [Concomitant]
  5. LAMICTAL [Concomitant]
  6. LYRICA [Concomitant]
  7. OXYCODONE HCL/ACETAMINOPHEN [Concomitant]
  8. PREVACID [Concomitant]
  9. PRISTIQ [Concomitant]
  10. PROVENTIL [Concomitant]
  11. SINGULAIR [Concomitant]
     Route: 065
  12. FLUOXETINE [Concomitant]
     Route: 065
  13. BUPROPION [Concomitant]
     Route: 065
  14. PREDNISONE [Concomitant]
     Route: 065

REACTIONS (1)
  - Hypersensitivity [Unknown]
